FAERS Safety Report 9837655 (Version 2)
Quarter: 2014Q1

REPORT INFORMATION
  Report Type: Report from Study
  Country: BR (occurrence: BR)
  Receive Date: 20140123
  Receipt Date: 20140129
  Transmission Date: 20141002
  Serious: Yes (Hospitalization)
  Sender: FDA-Public Use
  Company Number: BR-SA-2014SA007771

PATIENT
  Age: 79 Year
  Sex: Male
  Weight: 84.7 kg

DRUGS (15)
  1. CABAZITAXEL [Suspect]
     Indication: PROSTATE CANCER METASTATIC
     Route: 041
     Dates: start: 20131009, end: 20131009
  2. CABAZITAXEL [Suspect]
     Indication: PROSTATE CANCER METASTATIC
  3. PREDNISONE [Suspect]
     Indication: PROSTATE CANCER METASTATIC
     Route: 048
  4. CIPROFLOXACIN [Suspect]
     Indication: PROSTATE CANCER METASTATIC
     Route: 048
  5. GRANULOCYTE COLONY-STIMULATING FACTOR NOS [Suspect]
     Indication: PROSTATE CANCER METASTATIC
     Route: 058
  6. METFORMINA [Concomitant]
  7. OMEPRAZOLE [Concomitant]
     Dates: start: 2010
  8. DRAMIN [Concomitant]
     Dates: start: 201305
  9. FLUOXETINE [Concomitant]
     Dates: start: 2000
  10. DIGOXIN [Concomitant]
     Dates: start: 2000
  11. COUMADIN [Concomitant]
     Dates: start: 2000
  12. METOCLOPRAMIDE [Concomitant]
     Dates: start: 201310
  13. CALCIUM/VITAMIN D [Concomitant]
     Dates: start: 201108
  14. METAMIZOLE SODIUM [Concomitant]
     Dates: start: 2010
  15. PARACETAMOL [Concomitant]
     Dates: start: 2010

REACTIONS (1)
  - Pleural effusion [Not Recovered/Not Resolved]
